FAERS Safety Report 20951588 (Version 5)
Quarter: 2022Q4

REPORT INFORMATION
  Report Type: Spontaneous
  Country: US (occurrence: US)
  Receive Date: 20220613
  Receipt Date: 20221212
  Transmission Date: 20230112
  Serious: Yes (Hospitalization, Other)
  Sender: FDA-Public Use
  Company Number: US-PFIZER INC-202200825922

PATIENT
  Age: 57 Year
  Sex: Female

DRUGS (2)
  1. IBRANCE [Suspect]
     Active Substance: PALBOCICLIB
     Dosage: 125 MG, CYCLIC (DAILY FOR 21 DAYS FOLLOWED BY 7 DAYS OFF )
  2. IBRANCE [Suspect]
     Active Substance: PALBOCICLIB
     Dosage: 100 MG

REACTIONS (27)
  - Pneumonia [Recovering/Resolving]
  - Oxygen saturation decreased [Recovering/Resolving]
  - Pulmonary embolism [Recovering/Resolving]
  - Colitis ulcerative [Not Recovered/Not Resolved]
  - Septic shock [Unknown]
  - Neoplasm progression [Unknown]
  - Constipation [Unknown]
  - Nasopharyngitis [Unknown]
  - Dyspnoea [Unknown]
  - Hypotension [Unknown]
  - Pyrexia [Unknown]
  - Back pain [Recovered/Resolved]
  - White blood cell count decreased [Unknown]
  - Illness [Unknown]
  - Hypoaesthesia [Unknown]
  - Injury [Unknown]
  - Condition aggravated [Unknown]
  - Arthritis [Unknown]
  - Respiratory disorder [Unknown]
  - Nerve compression [Unknown]
  - Dysstasia [Unknown]
  - Pain [Not Recovered/Not Resolved]
  - Intervertebral disc protrusion [Unknown]
  - Weight increased [Unknown]
  - Swelling [Not Recovered/Not Resolved]
  - Drug hypersensitivity [Not Recovered/Not Resolved]
  - Gastrointestinal disorder [Unknown]

NARRATIVE: CASE EVENT DATE: 20220101
